FAERS Safety Report 5707630-5 (Version None)
Quarter: 2008Q2

REPORT INFORMATION
  Report Type: 
  Country: None (occurrence: None)
  Receive Date: 20080416
  Receipt Date: 20080404
  Transmission Date: 20081010
  Serious: Yes (Other)
  Sender: FDA-Public Use
  Company Number: SG-PFIZER INC-2008030051

PATIENT
  Age: 15 Year
  Sex: Male

DRUGS (1)
  1. PIROXICAM [Suspect]

REACTIONS (3)
  - PERIORBITAL OEDEMA [None]
  - URTICARIA [None]
  - WHEEZING [None]
